FAERS Safety Report 9922302 (Version 5)
Quarter: 2017Q1

REPORT INFORMATION
  Report Type: Spontaneous
  Country: JP (occurrence: JP)
  Receive Date: 20140225
  Receipt Date: 20170202
  Transmission Date: 20170429
  Serious: Yes (Hospitalization, Other)
  Sender: FDA-Public Use
  Company Number: JP-GLAXOSMITHKLINE-B0971478A

PATIENT
  Age: 56 Year
  Sex: Male

DRUGS (9)
  1. ZYRTEC [Concomitant]
     Active Substance: CETIRIZINE HYDROCHLORIDE
     Indication: DRUG ERUPTION
     Dates: start: 201401
  2. LAMOTRIGINE. [Suspect]
     Active Substance: LAMOTRIGINE
     Route: 048
     Dates: start: 20131119, end: 20131201
  3. CONIEL [Concomitant]
     Active Substance: BENIDIPINE HYDROCHLORIDE
     Dosage: 4 MG, 1D
  4. VALPROATE SODIUM. [Concomitant]
     Active Substance: VALPROATE SODIUM
     Indication: BIPOLAR I DISORDER
     Dosage: 400 MG, 1D
  5. QUETIAPINE. [Concomitant]
     Active Substance: QUETIAPINE
     Dosage: 200 MG, 1D
     Route: 048
  6. LAMOTRIGINE. [Suspect]
     Active Substance: LAMOTRIGINE
     Indication: BIPOLAR I DISORDER
     Dosage: 25 MG, QD
     Route: 048
     Dates: start: 20131028, end: 20131106
  7. ALLOPURINOL. [Suspect]
     Active Substance: ALLOPURINOL
     Indication: HYPERURICAEMIA
     Dosage: 100 MG, BID
     Route: 048
     Dates: end: 20140131
  8. LAMOTRIGINE. [Suspect]
     Active Substance: LAMOTRIGINE
     Route: 048
     Dates: start: 20131107, end: 20131118
  9. LAMOTRIGINE. [Suspect]
     Active Substance: LAMOTRIGINE
     Route: 048
     Dates: start: 20131202, end: 20140131

REACTIONS (20)
  - Rash [Recovering/Resolving]
  - Depressive symptom [Unknown]
  - Papule [Recovering/Resolving]
  - Insomnia [Unknown]
  - Chills [Unknown]
  - Pigmentation disorder [Not Recovered/Not Resolved]
  - Ileus paralytic [Unknown]
  - Rash [Unknown]
  - Stevens-Johnson syndrome [Recovering/Resolving]
  - Restlessness [Unknown]
  - Delusion of grandeur [Unknown]
  - Rash erythematous [Recovering/Resolving]
  - Hypomania [Unknown]
  - Constipation [Unknown]
  - Rash papular [Recovering/Resolving]
  - Intentional self-injury [Unknown]
  - Drug eruption [Recovering/Resolving]
  - Suicide attempt [Recovering/Resolving]
  - Delusion [Unknown]
  - Dandruff [Recovering/Resolving]

NARRATIVE: CASE EVENT DATE: 201312
